FAERS Safety Report 10223939 (Version 2)
Quarter: 2014Q2

REPORT INFORMATION
  Report Type: Report from Study
  Country: US (occurrence: None)
  Receive Date: 20140605
  Receipt Date: 20140617
  Transmission Date: 20141212
  Serious: Yes (Death)
  Sender: FDA-Public Use
  Company Number: ADR-2014-00950

PATIENT
  Age: 72 Year
  Sex: Female

DRUGS (4)
  1. BACLOFEN [Suspect]
     Indication: CANCER PAIN
     Dates: start: 20140325
  2. DILUADID [Suspect]
  3. BUPIVACAINE [Suspect]
     Dosage: (CONCENTRATION 15/MG/ML; DOSE 4.494 MG/DAY);
  4. CLONIDINE [Suspect]
     Dosage: (CONCENTRATION 250MCG/ML; DOSE 74.9MCG/DAY)

REACTIONS (2)
  - Vulval cancer [None]
  - Malignant neoplasm progression [None]
